FAERS Safety Report 6638520-1 (Version None)
Quarter: 2010Q1

REPORT INFORMATION
  Report Type: 
  Country: None (occurrence: None)
  Receive Date: 20100317
  Receipt Date: 20100305
  Transmission Date: 20100710
  Serious: Yes (Hospitalization)
  Sender: FDA-Public Use
  Company Number: US-ELI_LILLY_AND_COMPANY-US200708001187

PATIENT
  Sex: Male
  Weight: 95.238 kg

DRUGS (15)
  1. BYETTA [Suspect]
     Indication: TYPE 2 DIABETES MELLITUS
     Dosage: 1 MONTH
     Route: 058
     Dates: start: 20070416, end: 20070514
  2. BYETTA [Suspect]
     Dosage: 10 UG, 3 MONTHS
     Route: 058
     Dates: start: 20070514, end: 20070722
  3. METFORMIN HYDROCHLORIDE [Concomitant]
     Dosage: UNK, DAILY (1/D)
     Route: 065
  4. LANTUS [Concomitant]
     Dosage: 22 U, DAILY (1/D)
     Route: 065
  5. MULTIVITAMIN /01229101/ [Concomitant]
     Dosage: UNK, UNKNOWN
     Route: 065
  6. TRICOR [Concomitant]
     Dosage: 145 MG, DAILY (1/D)
     Route: 048
  7. UNIRETIC [Concomitant]
     Dosage: UNK, UNKNOWN
     Route: 065
  8. ASPIRIN [Concomitant]
     Dosage: UNK, DAILY (1/D)
     Route: 065
  9. TENORETIC 100 [Concomitant]
     Dosage: UNK, UNKNOWN
     Route: 065
  10. INSULIN [Concomitant]
  11. CHOLESTEROL- AND TRIGLYCERIDE REDUCERS [Concomitant]
  12. DIURETICS [Concomitant]
  13. CYMBALTA [Concomitant]
     Dosage: 30 MG, DAILY (1/D)
     Route: 048
  14. GLUCOVANCE [Concomitant]
     Dosage: UNK, EACH MORNING
     Route: 048
  15. METOPROLOL TARTRATE [Concomitant]
     Dosage: 25 MG, DAILY (1/D)
     Route: 048

REACTIONS (6)
  - AGITATION [None]
  - ANXIETY [None]
  - OFF LABEL USE [None]
  - PANCREATITIS ACUTE [None]
  - RENAL INJURY [None]
  - WEIGHT DECREASED [None]
